FAERS Safety Report 20931976 (Version 3)
Quarter: 2022Q3

REPORT INFORMATION
  Report Type: Report from Study
  Country: US (occurrence: US)
  Receive Date: 20220608
  Receipt Date: 20220719
  Transmission Date: 20221026
  Serious: Yes (Other)
  Sender: FDA-Public Use
  Company Number: US-TAKEDA-2022TUS037416

PATIENT
  Sex: Male
  Weight: 97 kg

DRUGS (3)
  1. MESALAMINE [Suspect]
     Active Substance: MESALAMINE
     Indication: Product used for unknown indication
     Dosage: 1.2 MILLIGRAM, BID
     Route: 065
  2. MESALAMINE [Suspect]
     Active Substance: MESALAMINE
     Dosage: 1.2 MILLIGRAM, BID
     Route: 048
  3. MESALAMINE [Suspect]
     Active Substance: MESALAMINE
     Dosage: 1.2 GRAM, BID
     Route: 048

REACTIONS (4)
  - Haemorrhage [Not Recovered/Not Resolved]
  - Pain [Not Recovered/Not Resolved]
  - Therapy interrupted [Not Recovered/Not Resolved]
  - Product availability issue [Not Recovered/Not Resolved]
